FAERS Safety Report 12674883 (Version 1)
Quarter: 2016Q3

REPORT INFORMATION
  Report Type: Spontaneous
  Country: US (occurrence: US)
  Receive Date: 20160823
  Receipt Date: 20160823
  Transmission Date: 20161109
  Serious: No
  Sender: FDA-Public Use
  Company Number: US-AMGEN-USASP2016103408

PATIENT
  Sex: Male

DRUGS (1)
  1. ENBREL [Suspect]
     Active Substance: ETANERCEPT
     Indication: PSORIATIC ARTHROPATHY
     Dosage: 50 MG, 3 TIMES/WK
     Route: 065

REACTIONS (4)
  - Mobility decreased [Unknown]
  - Drug dose omission [Unknown]
  - Off label use [Unknown]
  - Pain [Unknown]

NARRATIVE: CASE EVENT DATE: 2016
